FAERS Safety Report 5664843-9 (Version None)
Quarter: 2008Q1

REPORT INFORMATION
  Report Type: 
  Country: None (occurrence: None)
  Receive Date: 20080314
  Receipt Date: 20080304
  Transmission Date: 20080703
  Serious: Yes (Hospitalization, Other)
  Sender: FDA-Public Use
  Company Number: US-PFIZER INC-2006138201

PATIENT
  Sex: Male

DRUGS (3)
  1. DILANTIN [Suspect]
  2. PHENYTOIN [Suspect]
  3. KEPPRA [Concomitant]

REACTIONS (6)
  - CONVULSION [None]
  - DEHYDRATION [None]
  - DEPRESSED MOOD [None]
  - GASTROENTERITIS VIRAL [None]
  - GRAND MAL CONVULSION [None]
  - TREMOR [None]
